FAERS Safety Report 11317535 (Version 1)
Quarter: 2015Q3

REPORT INFORMATION
  Report Type: Spontaneous
  Country: US (occurrence: None)
  Receive Date: 20150727
  Receipt Date: 20150727
  Transmission Date: 20151125
  Serious: Yes (Other)
  Sender: FDA-Public Use
  Company Number: None

PATIENT
  Sex: Male

DRUGS (1)
  1. ARIPIPRAZOLE 2MG [Suspect]
     Active Substance: ARIPIPRAZOLE
     Indication: AUTISM SPECTRUM DISORDER
     Dosage: STOPPED ROUGHLY 2 YRS AGO
     Route: 048

REACTIONS (2)
  - Drug ineffective [None]
  - Abnormal behaviour [None]
